FAERS Safety Report 15336088 (Version 1)
Quarter: 2018Q3

REPORT INFORMATION
  Report Type: Spontaneous
  Country: VN (occurrence: VN)
  Receive Date: 20180830
  Receipt Date: 20180830
  Transmission Date: 20181010
  Serious: Yes (Death)
  Sender: FDA-Public Use
  Company Number: VN-009507513-2006-149782-NL

PATIENT
  Sex: Male

DRUGS (1)
  1. IMPLANON [Suspect]
     Active Substance: ETONOGESTREL
     Dosage: CONTINUING: NA
     Route: 064
     Dates: start: 20051026, end: 20060220

REACTIONS (1)
  - Death neonatal [Fatal]
